FAERS Safety Report 8583722-0 (Version None)
Quarter: 2012Q3

REPORT INFORMATION
  Report Type: 
  Country: None (occurrence: None)
  Receive Date: 20120810
  Receipt Date: 20120719
  Transmission Date: 20120928
  Serious: Yes (Hospitalization, Other)
  Sender: FDA-Public Use
  Company Number: JP-009507513-1207JPN007959

PATIENT

DRUGS (15)
  1. PEG-INTRON [Suspect]
     Indication: HEPATITIS C
     Dosage: 40MCG/WEEK
     Route: 058
     Dates: start: 20120403, end: 20120506
  2. REBETOL [Suspect]
     Route: 048
     Dates: start: 20120507, end: 20120612
  3. GASMOTIN [Concomitant]
     Indication: PROPHYLAXIS
     Route: 048
     Dates: start: 20120604, end: 20120618
  4. TELAVIC [Suspect]
     Route: 048
     Dates: start: 20120611, end: 20120612
  5. ACETAMINOPHEN [Concomitant]
     Indication: PYREXIA
     Dosage: 400MG/DAY, AS NEEDED.
     Route: 048
     Dates: start: 20120423, end: 20120506
  6. TRAVELMIN (DIPHENHYDRAMINE SALICYLATE (+) DYPHYLLINE) [Concomitant]
     Indication: DECREASED APPETITE
     Route: 048
     Dates: start: 20120612, end: 20120618
  7. SLOW-K [Concomitant]
     Indication: HYPOKALAEMIA
     Route: 048
     Dates: start: 20120521, end: 20120612
  8. OLOPATADINE HCL [Concomitant]
     Indication: RASH
     Route: 048
     Dates: start: 20120406, end: 20120411
  9. LOXONIN [Concomitant]
     Indication: PYREXIA
     Dosage: 60MG/DAY, AS NEEDED.
     Route: 048
     Dates: start: 20120417, end: 20120422
  10. ALLOPURINOL [Concomitant]
     Indication: BLOOD URIC ACID INCREASED
     Route: 048
     Dates: start: 20120423, end: 20120618
  11. PEG-INTRON [Suspect]
     Dosage: 20MCG/WEEK
     Route: 058
     Dates: start: 20120507, end: 20120513
  12. REBETOL [Suspect]
     Indication: HEPATITIS C
     Route: 048
     Dates: start: 20120403, end: 20120506
  13. FAMOTIDINE [Concomitant]
     Indication: PROPHYLAXIS
     Route: 048
     Dates: start: 20120423, end: 20120618
  14. PEG-INTRON [Suspect]
     Dosage: 40MCG/WEEK
     Route: 058
     Dates: start: 20120514, end: 20120610
  15. TELAVIC [Suspect]
     Indication: HEPATITIS C
     Route: 048
     Dates: start: 20120403, end: 20120610

REACTIONS (2)
  - DECREASED APPETITE [None]
  - ANAEMIA [None]
